FAERS Safety Report 6862935-X (Version None)
Quarter: 2010Q3

REPORT INFORMATION
  Report Type: 
  Country: None (occurrence: None)
  Receive Date: 20100721
  Receipt Date: 20100716
  Transmission Date: 20110219
  Serious: Yes (Death, Hospitalization)
  Sender: FDA-Public Use
  Company Number: US-CELGENEUS-163-21880-10062633

PATIENT
  Sex: Male

DRUGS (2)
  1. REVLIMID [Suspect]
     Route: 048
     Dates: start: 20100611, end: 20100601
  2. REVLIMID [Suspect]

REACTIONS (3)
  - DEATH [None]
  - PLATELET COUNT DECREASED [None]
  - PNEUMONIA [None]
